FAERS Safety Report 18640922 (Version 1)
Quarter: 2020Q4

REPORT INFORMATION
  Report Type: Spontaneous
  Country: US (occurrence: US)
  Receive Date: 20201221
  Receipt Date: 20201221
  Transmission Date: 20210114
  Serious: No
  Sender: FDA-Public Use
  Company Number: US-CELLTRION INC.-2020US029744

PATIENT

DRUGS (4)
  1. TRUXIMA [Suspect]
     Active Substance: RITUXIMAB-ABBS
     Dosage: 375 MG/M2 (800 MG/DOSE) WEEKLY X 4 PER TREATMENT COURSE (34-DAY CYCLE; CYCLE 2)
     Dates: start: 20201007, end: 20201030
  2. TRUXIMA [Suspect]
     Active Substance: RITUXIMAB-ABBS
     Indication: THROMBOCYTOPENIA
     Dosage: 375 MG/M2 (800 MG/DOSE) WEEKLY X 4 PER TREATMENT COURSE (30-DAY CYCLE; CYCLE 1)
     Dates: start: 20200909, end: 20200930
  3. TRUXIMA [Suspect]
     Active Substance: RITUXIMAB-ABBS
     Dosage: 375 MG/M2 (800 MG/DOSE) WEEKLY X 4 PER TREATMENT COURSE (34-DAY CYCLE; CYCLE 2)
     Dates: start: 20201007, end: 20201030
  4. TRUXIMA [Suspect]
     Active Substance: RITUXIMAB-ABBS
     Dosage: 375 MG/M2 (800 MG/DOSE) WEEKLY X 4 PER TREATMENT COURSE (30-DAY CYCLE; CYCLE 1)
     Dates: start: 20200909, end: 20200930

REACTIONS (1)
  - Off label use [Unknown]

NARRATIVE: CASE EVENT DATE: 20200909
